FAERS Safety Report 21271085 (Version 1)
Quarter: 2022Q3

REPORT INFORMATION
  Report Type: Spontaneous
  Country: US (occurrence: US)
  Receive Date: 20220830
  Receipt Date: 20220830
  Transmission Date: 20221027
  Serious: No
  Sender: FDA-Public Use
  Company Number: US-ELI_LILLY_AND_COMPANY-US202208010916

PATIENT
  Sex: Female

DRUGS (11)
  1. TRULICITY [Suspect]
     Active Substance: DULAGLUTIDE
     Indication: Type 2 diabetes mellitus
     Dosage: 0.75 MG, WEEKLY (1/W)
     Route: 058
     Dates: start: 20220817
  2. SYNJARDY [Concomitant]
     Active Substance: EMPAGLIFLOZIN\METFORMIN HYDROCHLORIDE
     Indication: Type 2 diabetes mellitus
     Dosage: 25 MG, DAILY (JARDIANCE)
  3. SYNJARDY [Concomitant]
     Active Substance: EMPAGLIFLOZIN\METFORMIN HYDROCHLORIDE
     Dosage: 1000 MG, DAILY (METFORMIN)
  4. MAGNESIUM MALATE [Concomitant]
     Active Substance: MAGNESIUM MALATE
     Indication: Product used for unknown indication
  5. LOSARTAN [Concomitant]
     Active Substance: LOSARTAN
     Indication: Product used for unknown indication
     Dosage: 50 MG, DAILY (TWO 25MG ONCE)
  6. IBUPROFEN [Concomitant]
     Active Substance: IBUPROFEN
     Indication: Arthritis
     Dosage: 1200 MG, UNKNOWN
  7. IBUPROFEN [Concomitant]
     Active Substance: IBUPROFEN
     Dosage: 1500 MG, UNKNOWN
  8. HYALURONIC ACID [Concomitant]
     Active Substance: HYALURONIC ACID
     Indication: Arthralgia
  9. MELOXICAM [Concomitant]
     Active Substance: MELOXICAM
     Indication: Product used for unknown indication
  10. METOPROLOL [Concomitant]
     Active Substance: METOPROLOL
     Indication: Blood pressure measurement
     Dosage: 12.5 MG, BID
  11. METOPROLOL [Concomitant]
     Active Substance: METOPROLOL
     Indication: Heart rate increased

REACTIONS (7)
  - Blood glucose increased [Unknown]
  - Gait disturbance [Unknown]
  - Blood pressure abnormal [Unknown]
  - Dyspnoea [Unknown]
  - Feeling abnormal [Unknown]
  - Memory impairment [Unknown]
  - Heart rate increased [Unknown]
